FAERS Safety Report 4933809-6 (Version None)
Quarter: 2006Q1

REPORT INFORMATION
  Report Type: 
  Country: None (occurrence: None)
  Receive Date: 20060306
  Receipt Date: 20050414
  Transmission Date: 20060701
  Serious: Yes (Hospitalization)
  Sender: FDA-Public Use
  Company Number: US-MERCK-0504USA02806

PATIENT
  Age: 24 Year
  Sex: Female
  Weight: 61 kg

DRUGS (3)
  1. VIOXX [Suspect]
     Indication: BACK PAIN
     Route: 048
     Dates: start: 20020701, end: 20040501
  2. FLEXERIL [Concomitant]
     Route: 065
  3. DARVOCET [Concomitant]
     Route: 065

REACTIONS (2)
  - CARDIAC DISORDER [None]
  - NEOPLASM [None]
